FAERS Safety Report 16266163 (Version 1)
Quarter: 2019Q2

REPORT INFORMATION
  Report Type: Spontaneous
  Country: FR (occurrence: FR)
  Receive Date: 20190502
  Receipt Date: 20190502
  Transmission Date: 20190711
  Serious: Yes (Hospitalization)
  Sender: FDA-Public Use
  Company Number: FR-MYLANLABS-2019M1042082

PATIENT
  Age: 47 Year
  Sex: Male

DRUGS (3)
  1. CIPROFLOXACIN. [Suspect]
     Active Substance: CIPROFLOXACIN
     Indication: MEDICAL DEVICE SITE JOINT INFECTION
     Dosage: 1500 MILLIGRAM, QD
     Route: 048
     Dates: start: 20180913, end: 20181024
  2. TEICOPLANIN [Suspect]
     Active Substance: TEICOPLANIN
     Indication: MEDICAL DEVICE SITE JOINT INFECTION
     Dosage: 900 MILLIGRAM, QD
     Route: 042
     Dates: start: 20180913, end: 20181024
  3. FLUCONAZOLE. [Suspect]
     Active Substance: FLUCONAZOLE
     Indication: MEDICAL DEVICE SITE JOINT INFECTION
     Dosage: 400 MILLIGRAM, QD
     Route: 048
     Dates: start: 20180913, end: 20181024

REACTIONS (1)
  - Renal tubular necrosis [Not Recovered/Not Resolved]

NARRATIVE: CASE EVENT DATE: 20181024
